FAERS Safety Report 5993888-4 (Version None)
Quarter: 2008Q4

REPORT INFORMATION
  Report Type: 
  Country: None (occurrence: None)
  Receive Date: 20081212
  Receipt Date: 20081103
  Transmission Date: 20090506
  Serious: No
  Sender: FDA-Public Use
  Company Number: US-ABBOTT-08P-163-0459000-00

PATIENT
  Sex: Male
  Weight: 95.34 kg

DRUGS (10)
  1. HUMIRA [Suspect]
     Indication: RHEUMATOID ARTHRITIS
     Route: 058
     Dates: start: 20080103
  2. PREDNISONE TAB [Concomitant]
     Indication: DRUG USE FOR UNKNOWN INDICATION
  3. PREDNISONE TAB [Concomitant]
  4. MECLIZINE HCL [Concomitant]
     Indication: DRUG USE FOR UNKNOWN INDICATION
  5. MECLIZINE HCL [Concomitant]
  6. GALENIC /PARACETAMOL/CODEINE/ [Concomitant]
     Indication: DRUG USE FOR UNKNOWN INDICATION
  7. GALENIC /PARACETAMOL/CODEINE/ [Concomitant]
  8. ATENOLOL [Concomitant]
     Indication: HYPERTENSION
  9. ATENOLOL [Concomitant]
  10. NAPROXEN SODIUM [Concomitant]
     Indication: PAIN

REACTIONS (4)
  - ARTHRALGIA [None]
  - INJECTION SITE PAIN [None]
  - JOINT SWELLING [None]
  - OCULAR HYPERAEMIA [None]
